FAERS Safety Report 16570367 (Version 1)
Quarter: 2019Q3

REPORT INFORMATION
  Report Type: Spontaneous
  Country: US (occurrence: US)
  Receive Date: 20190715
  Receipt Date: 20190715
  Transmission Date: 20191004
  Serious: No
  Sender: FDA-Public Use
  Company Number: US-JNJFOC-20190713703

PATIENT
  Sex: Female
  Weight: 69.92 kg

DRUGS (1)
  1. TYLENOL [Suspect]
     Active Substance: ACETAMINOPHEN
     Indication: PROCEDURAL PAIN
     Dosage: 2 TABLETS 6 TIMES A DAY
     Route: 048

REACTIONS (4)
  - Somnolence [Recovered/Resolved]
  - Haematinuria [Not Recovered/Not Resolved]
  - Tremor [Recovered/Resolved]
  - Overdose [Unknown]
